FAERS Safety Report 19793375 (Version 2)
Quarter: 2021Q3

REPORT INFORMATION
  Report Type: Report from Study
  Country: DK (occurrence: DK)
  Receive Date: 20210906
  Receipt Date: 20210922
  Transmission Date: 20211014
  Serious: Yes (Hospitalization)
  Sender: FDA-Public Use
  Company Number: DK-ROCHE-2899708

PATIENT
  Age: 74 Year
  Sex: Female
  Weight: 66.6 kg

DRUGS (16)
  1. OBINUTUZUMAB. [Suspect]
     Active Substance: OBINUTUZUMAB
     Indication: B-CELL LYMPHOMA REFRACTORY
     Dosage: DOSE LAST STUDY DRUG ADMIN PRIOR AE IS 1000 MGTOTAL VOLUME PRIOR AE IS 250 ML?START DATE OF MOST REC
     Route: 042
     Dates: start: 20210609
  2. POLATUZUMAB VEDOTIN. [Suspect]
     Active Substance: POLATUZUMAB VEDOTIN
     Indication: B-CELL LYMPHOMA REFRACTORY
     Dosage: DOSE LAST STUDY DRUG ADMIN PRIOR AE IS 126 MGTOTAL VOLUME PRIOR AE IS 100 ML?START DATE OF MOST RECE
     Route: 042
     Dates: start: 20210610
  3. METOCLOPRAMIDE. [Concomitant]
     Active Substance: METOCLOPRAMIDE
     Indication: NAUSEA
     Dates: start: 20210726
  4. ALLOPURINOL. [Concomitant]
     Active Substance: ALLOPURINOL
     Dates: start: 20210604
  5. ACICLOVIR [Concomitant]
     Active Substance: ACYCLOVIR
     Dates: start: 20210609
  6. AZITROMYCIN [Concomitant]
     Active Substance: AZITHROMYCIN ANHYDROUS
     Indication: PNEUMONIA
     Dates: start: 20210728, end: 20210730
  7. GLOFITAMAB. [Suspect]
     Active Substance: GLOFITAMAB
     Indication: B-CELL LYMPHOMA REFRACTORY
     Dosage: DOSE LAST STUDY DRUG ADMIN PRIOR AE IS 30 MG?START DATE OF MOST RECENT DOSE OF STUDY DRUG PRIOR TO A
     Route: 042
     Dates: start: 20210616
  8. PANTOPRAZOLE [Concomitant]
     Active Substance: PANTOPRAZOLE
     Indication: NAUSEA
     Dates: start: 20210707
  9. PIPERACILLIN. [Concomitant]
     Active Substance: PIPERACILLIN SODIUM
     Indication: PNEUMONIA
     Dates: start: 20210725, end: 20210728
  10. PARACETAMOL [Concomitant]
     Active Substance: ACETAMINOPHEN
     Dates: start: 20140314
  11. SULFAMETOXAZOL [Concomitant]
     Active Substance: SULFAMETHOXAZOLE
     Dates: start: 20210609
  12. CLEMASTINE [Concomitant]
     Active Substance: CLEMASTINE
     Route: 048
     Dates: start: 20210804, end: 20210804
  13. PARACETAMOL [Concomitant]
     Active Substance: ACETAMINOPHEN
     Indication: PAIN
     Route: 048
     Dates: start: 20210804, end: 20210804
  14. RAMIPRIL. [Concomitant]
     Active Substance: RAMIPRIL
     Indication: CARDIAC FAILURE
     Dates: start: 20210903
  15. METOMYLAN [Concomitant]
     Active Substance: METOPROLOL SUCCINATE
     Indication: HYPERTENSION
     Dates: start: 20180905
  16. DEXAMETHASONE. [Concomitant]
     Active Substance: DEXAMETHASONE
     Route: 042
     Dates: start: 20210804, end: 20210804

REACTIONS (2)
  - Cardiac failure [Not Recovered/Not Resolved]
  - Malaise [Not Recovered/Not Resolved]

NARRATIVE: CASE EVENT DATE: 20210826
